FAERS Safety Report 5833057-1 (Version None)
Quarter: 2008Q3

REPORT INFORMATION
  Report Type: 
  Country: None (occurrence: None)
  Receive Date: 20080805
  Receipt Date: 20080728
  Transmission Date: 20090109
  Serious: Yes (Congenital Anomaly)
  Sender: FDA-Public Use
  Company Number: IE-RANBAXY-2008RR-16759

PATIENT

DRUGS (10)
  1. TOPIRAMAT RANBAXY 25MG TABLET [Suspect]
     Dosage: 50-800MG/DAY
  2. CARBAMAZEPINE [Concomitant]
     Indication: EPILEPSY
     Route: 015
  3. CLOBAZAM [Concomitant]
     Indication: EPILEPSY
     Route: 015
  4. ETHOSUXIMIDE [Concomitant]
     Indication: EPILEPSY
     Route: 015
  5. LAMOTRIGINE [Concomitant]
     Indication: EPILEPSY
     Route: 015
  6. LEVETIRACETAM [Concomitant]
     Indication: EPILEPSY
     Route: 015
  7. PHENOBARBITAL TAB [Concomitant]
     Indication: EPILEPSY
     Route: 015
  8. PHENYTOIN [Concomitant]
     Indication: EPILEPSY
     Route: 015
  9. VALPROIC ACID [Concomitant]
     Indication: EPILEPSY
     Route: 015
  10. VIGABATRIN [Concomitant]
     Indication: EPILEPSY
     Route: 015

REACTIONS (10)
  - ANAL ATRESIA [None]
  - CLEFT LIP AND PALATE [None]
  - HERNIA [None]
  - HYDROCELE [None]
  - HYDRONEPHROSIS [None]
  - HYPOSPADIAS [None]
  - JOINT INJURY [None]
  - PLAGIOCEPHALY [None]
  - PYLORIC STENOSIS [None]
  - TRACHEO-OESOPHAGEAL FISTULA [None]
